FAERS Safety Report 25216491 (Version 2)
Quarter: 2025Q3

REPORT INFORMATION
  Report Type: Report from Study
  Country: US (occurrence: US)
  Receive Date: 20250419
  Receipt Date: 20250805
  Transmission Date: 20251021
  Serious: Yes (Death, Other)
  Sender: AMNEAL
  Company Number: US-AMNEAL PHARMACEUTICALS-2025-AMRX-01405

PATIENT
  Sex: Male

DRUGS (1)
  1. RELEUKO [Suspect]
     Active Substance: FILGRASTIM-AYOW
     Indication: Agranulocytosis
     Dosage: 480 MCG/0.8ML, 4X/WEEK
     Route: 058

REACTIONS (1)
  - Lung neoplasm malignant [Fatal]
